FAERS Safety Report 14767708 (Version 3)
Quarter: 2018Q2

REPORT INFORMATION
  Report Type: Spontaneous
  Country: IT (occurrence: IT)
  Receive Date: 20180417
  Receipt Date: 20180607
  Transmission Date: 20180711
  Serious: Yes (Other)
  Sender: FDA-Public Use
  Company Number: IT-AUROBINDO-AUR-APL-2018-004081

PATIENT
  Age: 8 Year
  Sex: Female

DRUGS (5)
  1. MEMANTINE. [Suspect]
     Active Substance: MEMANTINE
     Dosage: 2 MG, QD
     Route: 065
  2. LEVETIRACETAM. [Concomitant]
     Active Substance: LEVETIRACETAM
     Indication: EPILEPSY
     Dosage: ()
     Route: 065
  3. MEMANTINE. [Suspect]
     Active Substance: MEMANTINE
     Indication: GENE MUTATION
     Dosage: 2.5 MG, DAILY
  4. MEMANTINE. [Suspect]
     Active Substance: MEMANTINE
     Dosage: 2.5 MG, QD
     Route: 065
  5. MEMANTINE. [Suspect]
     Active Substance: MEMANTINE
     Indication: EPILEPSY
     Dosage: 2 MG, QD
     Route: 065

REACTIONS (3)
  - Anxiety [Unknown]
  - Psychotic disorder [Unknown]
  - Psychomotor hyperactivity [Unknown]
